FAERS Safety Report 6942113-6 (Version None)
Quarter: 2010Q3

REPORT INFORMATION
  Report Type: 
  Country: None (occurrence: None)
  Receive Date: 20100823
  Receipt Date: 20100810
  Transmission Date: 20110219
  Serious: Yes (Other)
  Sender: FDA-Public Use
  Company Number: 2010-00810

PATIENT
  Age: 18 Month
  Sex: Female

DRUGS (1)
  1. SUPRAX [Suspect]
     Indication: OTITIS MEDIA
     Dosage: 8 MG PER, ORAL
     Route: 048

REACTIONS (2)
  - HAEMATOCHEZIA [None]
  - MUCOUS STOOLS [None]
